FAERS Safety Report 13563570 (Version 1)
Quarter: 2017Q2

REPORT INFORMATION
  Report Type: Spontaneous
  Country: US (occurrence: US)
  Receive Date: 20170519
  Receipt Date: 20170519
  Transmission Date: 20170830
  Serious: Yes (Hospitalization)
  Sender: FDA-Public Use
  Company Number: None

PATIENT
  Age: 67 Year
  Sex: Female
  Weight: 52.7 kg

DRUGS (7)
  1. COGENTIN [Concomitant]
     Active Substance: BENZTROPINE MESYLATE
  2. CYCLOPHOSPHAMIDE. [Suspect]
     Active Substance: CYCLOPHOSPHAMIDE
     Dates: end: 20170501
  3. TRAZODONE [Concomitant]
     Active Substance: TRAZODONE HYDROCHLORIDE
  4. DOXORUBICIN HYDROCHLORIDE. [Suspect]
     Active Substance: DOXORUBICIN HYDROCHLORIDE
     Dates: end: 20170501
  5. ARIPRIPRAZOLE [Concomitant]
     Active Substance: ARIPIPRAZOLE
  6. CITALOPRAM [Concomitant]
     Active Substance: CITALOPRAM HYDROBROMIDE
  7. REMERON [Concomitant]
     Active Substance: MIRTAZAPINE

REACTIONS (4)
  - Asthenia [None]
  - Hypophagia [None]
  - Depression [None]
  - Failure to thrive [None]

NARRATIVE: CASE EVENT DATE: 20170512
